FAERS Safety Report 20015569 (Version 1)
Quarter: 2021Q4

REPORT INFORMATION
  Report Type: Spontaneous
  Country: US (occurrence: None)
  Receive Date: 20211101
  Receipt Date: 20211101
  Transmission Date: 20220303
  Serious: No
  Sender: FDA-Public Use
  Company Number: None

PATIENT
  Age: 43 Year
  Sex: Female

DRUGS (1)
  1. TAXOL [Suspect]
     Active Substance: PACLITAXEL
     Indication: Breast cancer

REACTIONS (1)
  - Bone pain [None]

NARRATIVE: CASE EVENT DATE: 20091028
